FAERS Safety Report 15827807 (Version 1)
Quarter: 2019Q1

REPORT INFORMATION
  Report Type: Spontaneous
  Country: CA (occurrence: CA)
  Receive Date: 20190115
  Receipt Date: 20190115
  Transmission Date: 20190417
  Serious: Yes (Other)
  Sender: FDA-Public Use
  Company Number: CA-MYLANLABS-2019M1002596

PATIENT
  Age: 83 Year
  Sex: Male

DRUGS (1)
  1. MYLAN-NITRO PATCH 0.4 [Suspect]
     Active Substance: NITROGLYCERIN
     Indication: ANGINA PECTORIS
     Dosage: 1 DOSAGE FORM, QD
     Route: 062

REACTIONS (1)
  - Rash [Recovered/Resolved]
